FAERS Safety Report 7498560-X (Version None)
Quarter: 2011Q2

REPORT INFORMATION
  Report Type: 
  Country: None (occurrence: None)
  Receive Date: 20110516
  Receipt Date: 20110503
  Transmission Date: 20111010
  Serious: Yes (Hospitalization)
  Sender: FDA-Public Use
  Company Number: 032239

PATIENT
  Age: 72 Year
  Sex: Male
  Weight: 72 kg

DRUGS (6)
  1. KEPPRA [Suspect]
     Indication: EPILEPSY
     Dosage: ORAL
     Route: 048
     Dates: start: 20110316, end: 20110401
  2. AMITRIPTYLINE HCL [Concomitant]
  3. CITALOPRAM HYDROBROMIDE [Concomitant]
  4. INDAPAMIDE [Concomitant]
  5. SIMVASTATIN [Concomitant]
  6. DIGOXIN [Concomitant]

REACTIONS (2)
  - HALLUCINATION [None]
  - DELIRIUM [None]
